FAERS Safety Report 26096516 (Version 1)
Quarter: 2025Q4

REPORT INFORMATION
  Report Type: Spontaneous
  Country: IL (occurrence: IL)
  Receive Date: 20251127
  Receipt Date: 20251127
  Transmission Date: 20260118
  Serious: Yes (Hospitalization, Other)
  Sender: RANBAXY
  Company Number: IL-SUN PHARMACEUTICAL INDUSTRIES LTD-2025R1-538291

PATIENT
  Age: 33 Year
  Sex: Female

DRUGS (2)
  1. VALPROIC ACID [Suspect]
     Active Substance: VALPROIC ACID
     Indication: Product used for unknown indication
     Dosage: UNK 80 TABS OF 200?MG STRENGTH
     Route: 065
  2. DIAZEPAM [Suspect]
     Active Substance: DIAZEPAM
     Indication: Product used for unknown indication
     Dosage: UNK (UP TO 10 TABS OF 5?MG STRENGTH)
     Route: 065

REACTIONS (6)
  - Intentional overdose [Recovering/Resolving]
  - Depressed level of consciousness [Recovering/Resolving]
  - Somnolence [Recovering/Resolving]
  - Hypotension [Recovering/Resolving]
  - Leukocytosis [Recovering/Resolving]
  - Sinus bradycardia [Recovering/Resolving]
